FAERS Safety Report 6551466-2 (Version None)
Quarter: 2010Q1

REPORT INFORMATION
  Report Type: 
  Country: None (occurrence: None)
  Receive Date: 20100126
  Receipt Date: 20100118
  Transmission Date: 20100710
  Serious: Yes (Other)
  Sender: FDA-Public Use
  Company Number: FR-MILLENNIUM PHARMACEUTICALS, INC.-2009-05036

PATIENT

DRUGS (3)
  1. VELCADE [Suspect]
     Indication: MULTIPLE MYELOMA
     Dosage: UNK
     Dates: start: 20091018, end: 20091116
  2. MELPHALAN HYDROCHLORIDE [Concomitant]
  3. PREDNISONE TAB [Concomitant]

REACTIONS (2)
  - THROMBOCYTOPENIA [None]
  - VASCULITIS [None]
